FAERS Safety Report 4286106-9 (Version None)
Quarter: 2004Q1

REPORT INFORMATION
  Report Type: 
  Country: None (occurrence: None)
  Receive Date: 20040120
  Receipt Date: 20030106
  Transmission Date: 20041129
  Serious: Yes (Other)
  Sender: FDA-Public Use
  Company Number: A03200201008

PATIENT
  Age: 88 Year
  Sex: Male
  Weight: 81.6475 kg

DRUGS (24)
  1. PLAVIX [Suspect]
     Indication: CEREBROVASCULAR ACCIDENT
     Dosage: 75 MG QD - ORAL
     Route: 048
     Dates: start: 20011201, end: 20020601
  2. LANSOPRAZOLE [Concomitant]
  3. LOSARTAN POTASSIUM [Concomitant]
  4. DILTIAZEM [Concomitant]
  5. ACETYLSALICYLIC ACID SRT [Concomitant]
  6. IRON [Concomitant]
  7. SENNA FRUIT [Concomitant]
  8. MULTI-VITAMINS [Concomitant]
  9. LECITHIN [Concomitant]
  10. WHEAT GERM [Concomitant]
  11. FLAX SEED MEAL [Concomitant]
  12. AMBROTOSE - POLYSACCHARIDES [Concomitant]
  13. PLUS - WILD YAM [Concomitant]
  14. QUADRAZYME - AMYLASE, ETC. [Concomitant]
  15. VITAMIN E [Concomitant]
  16. VITAMIN C [Concomitant]
  17. VITAMIN B-12 [Concomitant]
  18. MAGNESIUM [Concomitant]
  19. COD-LIVER OIL [Concomitant]
  20. ZINC SULFATE [Concomitant]
  21. SAW PALMETTO [Concomitant]
  22. ULTRA ENERGY [Concomitant]
  23. ELECTROLYTE TABLETS [Concomitant]
  24. VITAMIN A AND D [Concomitant]

REACTIONS (1)
  - CEREBROVASCULAR ACCIDENT [None]
